FAERS Safety Report 11873031 (Version 2)
Quarter: 2016Q1

REPORT INFORMATION
  Report Type: Spontaneous
  Country: IT (occurrence: IT)
  Receive Date: 20151228
  Receipt Date: 20160119
  Transmission Date: 20160526
  Serious: Yes (Hospitalization)
  Sender: FDA-Public Use
  Company Number: IT-PFIZER INC-2015413107

PATIENT
  Age: 49 Year
  Sex: Female

DRUGS (6)
  1. CARBOLITHIUM [Suspect]
     Active Substance: LITHIUM CARBONATE
     Indication: DEPRESSION
     Dosage: 10 DF, TOTAL
     Route: 048
     Dates: start: 20150418, end: 20150418
  2. EN [Suspect]
     Active Substance: DELORAZEPAM
     Dosage: INTAKE OF AN ENTIRE 20 ML BOTTLE
     Route: 048
     Dates: start: 20150418, end: 20150418
  3. TAVOR (LORAZEPAM) [Suspect]
     Active Substance: LORAZEPAM
     Indication: ANXIETY
     Dosage: INTAKE OF 2 PACKS FOR A TOTAL OF 40 TABLETS
     Route: 048
     Dates: start: 20150418, end: 20150418
  4. RIVOTRIL [Suspect]
     Active Substance: CLONAZEPAM
     Indication: ANXIETY
     Dosage: INTAKE OF 5 BOTTLE OF RIVOTRIL FOR A TOTAL OF 125 MG
     Route: 048
     Dates: start: 20150418, end: 20150418
  5. OXYBUTYNIN HYDROCHLORIDE [Concomitant]
     Active Substance: OXYBUTYNIN CHLORIDE
     Indication: BLADDER SPASM
     Dosage: UNK
     Route: 048
     Dates: start: 20140101, end: 20150418
  6. DOMINANS [Concomitant]
     Active Substance: NORTRIPTYLINE HYDROCHLORIDE
     Indication: DEPRESSION
     Dosage: UNK
     Route: 048
     Dates: start: 20140101, end: 20150418

REACTIONS (4)
  - Sopor [Unknown]
  - Psychomotor retardation [Recovered/Resolved]
  - Suicide attempt [Unknown]
  - Overdose [Recovered/Resolved]

NARRATIVE: CASE EVENT DATE: 20150418
